FAERS Safety Report 13517001 (Version 5)
Quarter: 2018Q3

REPORT INFORMATION
  Report Type: Spontaneous
  Country: US (occurrence: US)
  Receive Date: 20170505
  Receipt Date: 20180831
  Transmission Date: 20181010
  Serious: No
  Sender: FDA-Public Use
  Company Number: US-PFIZER INC-2017194919

PATIENT
  Age: 67 Year
  Sex: Male

DRUGS (43)
  1. LYRICA [Suspect]
     Active Substance: PREGABALIN
     Indication: PARAESTHESIA
     Dosage: 50 MG, 3X/DAY (Q 8 HOURS)
     Route: 048
     Dates: start: 201507
  2. CLARITIN [Concomitant]
     Active Substance: LORATADINE
     Indication: HYPERSENSITIVITY
     Dosage: 10 MG, 1X/DAY
     Route: 048
  3. TRIAMCINOLONE ACETONIDE. [Concomitant]
     Active Substance: TRIAMCINOLONE ACETONIDE
     Indication: DRY SKIN
  4. MULTIVITAMINS [Concomitant]
     Active Substance: VITAMINS
     Dosage: UNK
  5. TAMSULOSIN [Concomitant]
     Active Substance: TAMSULOSIN
     Dosage: 0.4 MG, 1X/DAY (0.4MG CAPSULE ONCE A DAY AT BEDTIME)
  6. LOVAZA [Concomitant]
     Active Substance: OMEGA-3-ACID ETHYL ESTERS
     Dosage: 1 G, DAILY
     Route: 048
  7. ARISTOCORT A [Concomitant]
     Dosage: 0.1 %, 2X/DAY 2X/DAY(APPLY TO AFFECTED AREA)
     Route: 061
  8. LYRICA [Suspect]
     Active Substance: PREGABALIN
     Indication: PAIN
     Dosage: 50 MG, 3X/DAY(THRICE A DAY (EVERY 8 HOURS)
     Route: 048
     Dates: start: 20150831
  9. OXYBUTIN [Concomitant]
     Active Substance: OXYBUTYNIN
     Indication: BLADDER DISORDER
     Dosage: 10 MG, 2X/DAY
  10. ASPIRIN 81 [Concomitant]
     Active Substance: ASPIRIN
     Dosage: 81 MG, ONE TAB DAILY
     Route: 048
  11. FLONASE [Concomitant]
     Active Substance: FLUTICASONE PROPIONATE
     Dosage: UNK, 1X/DAY ((2 SPRAYS INTO BOTH NOSTRILS) (50 MCG/ACT))
     Route: 045
  12. LOSARTAN. [Concomitant]
     Active Substance: LOSARTAN
     Dosage: UNK, 1X/DAY
     Route: 048
  13. LORATADINE. [Concomitant]
     Active Substance: LORATADINE
     Indication: BLOOD PRESSURE ABNORMAL
  14. CLARITIN [Concomitant]
     Active Substance: LORATADINE
     Dosage: 10 MG, 1X/DAY
     Route: 048
  15. LIPITOR [Concomitant]
     Active Substance: ATORVASTATIN CALCIUM
     Dosage: 20 MG, 1X/DAY (NIGHT AT BEDTIME)
     Route: 048
  16. BIOTIN [Concomitant]
     Active Substance: BIOTIN
     Dosage: 10 MG, UNK
     Route: 048
  17. LYRICA [Suspect]
     Active Substance: PREGABALIN
     Indication: NEUROPATHY PERIPHERAL
     Dosage: 50 MG, 3X/DAY
     Dates: start: 201701
  18. LOSARTAN. [Concomitant]
     Active Substance: LOSARTAN
     Indication: BLOOD PRESSURE ABNORMAL
     Dosage: 100 MG, DAILY(ONE DAILY)
     Route: 048
  19. ADVIL [Concomitant]
     Active Substance: IBUPROFEN
     Indication: PAIN
     Dosage: 800 MG, AS NEEDED (AS NEEDED (EVERY 8 HOURS ) WITH FOOD))
     Route: 048
  20. LOVAZA [Concomitant]
     Active Substance: OMEGA-3-ACID ETHYL ESTERS
     Dosage: 2 G, 1X/DAY
     Route: 048
  21. GYMNEMA SYLVESTRE /08964301/ [Concomitant]
     Active Substance: HERBALS
     Indication: BLOOD GLUCOSE ABNORMAL
     Dosage: UNK
  22. DITROPAN [Concomitant]
     Active Substance: OXYBUTYNIN CHLORIDE
     Dosage: 20 MG, 1X/DAY
  23. LORATADINE. [Concomitant]
     Active Substance: LORATADINE
     Indication: LIVER DISORDER
     Dosage: 10 MG, DAILY (ONE PILL )
     Route: 048
  24. TRIAMCINOLONE ACETONIDE. [Concomitant]
     Active Substance: TRIAMCINOLONE ACETONIDE
     Indication: RASH
     Dosage: UNK, AS NEEDED,0.1% OINTMENT AS NEEDED ON HANDS
  25. ARTIFICIAL TEARS [Concomitant]
     Active Substance: GLYCERIN\HYPROMELLOSES\POLYETHYLENE GLYCOL 400
     Dosage: UNK(APPLY INTO THE EYE(S)
     Route: 031
  26. GLUCOPHAGE [Concomitant]
     Active Substance: METFORMIN HYDROCHLORIDE
     Dosage: 1000 MG, 2X/DAY(DAILLY, (TAKE ONE TAB BY MOUTH TWICE DAILY WITH BREAKFAST AND DINNER))
     Route: 048
  27. FLOMAX [Concomitant]
     Active Substance: TAMSULOSIN HYDROCHLORIDE
     Dosage: 0.4 MG, 1X/DAY
     Route: 048
  28. LYRICA [Suspect]
     Active Substance: PREGABALIN
     Dosage: 50 MG, 3X/DAY (TAKE 1 CAP BY MOUTH EVERY 8 HOURS )
     Route: 048
     Dates: start: 20170710
  29. FISH OIL [Concomitant]
     Active Substance: FISH OIL
     Dosage: UNK
  30. TESSALON [Concomitant]
     Active Substance: BENZONATATE
     Indication: COUGH
     Dosage: 100 MG, 3X/DAY(ONE CAP 3X/DAY)
     Route: 048
  31. DITROPAN [Concomitant]
     Active Substance: OXYBUTYNIN CHLORIDE
     Dosage: 20 MG, DAILY ((10 MG/TAKE TWO TABS))
     Route: 048
  32. FLOMAX [Concomitant]
     Active Substance: TAMSULOSIN HYDROCHLORIDE
     Dosage: 0.8 MG, 1X/DAY (NIGHT AT BEDTIME)
     Route: 048
  33. KENALOG [Concomitant]
     Active Substance: TRIAMCINOLONE ACETONIDE
     Dosage: 0.1 %, 2X/DAY(2X/DAY(APPLY TO AFFECTED AREA))
     Route: 061
  34. METAMUCIL [Concomitant]
     Active Substance: PLANTAGO SEED
     Indication: CONSTIPATION
     Dosage: UNK, AS NEEDED (1 TBSP, ONCE DAILY)
     Route: 048
  35. BABY ASPIRIN [Concomitant]
     Active Substance: ASPIRIN
     Dosage: 81 MG, UNK
  36. MOTRIN [Concomitant]
     Active Substance: IBUPROFEN
     Indication: PAIN
     Dosage: 800 MG, 3X/DAY((EVERY 8 HOURS) WITH FOOD)
     Route: 048
  37. OXYBUTYNIN. [Concomitant]
     Active Substance: OXYBUTYNIN CHLORIDE
     Indication: BLADDER DISORDER
     Dosage: 2 DF, 1X/DAY (2 TABLETS)
     Route: 048
  38. VITAMIN D3 [Concomitant]
     Active Substance: CHOLECALCIFEROL
     Dosage: 2000 IU, 1X/DAY
     Route: 048
  39. TYLENOL [Concomitant]
     Active Substance: ACETAMINOPHEN
     Indication: PAIN
     Dosage: 500 MG, AS NEEDED (EVERY 6 HOURS)
     Route: 048
  40. CLARITIN [Concomitant]
     Active Substance: LORATADINE
     Dosage: UNK, 1X/DAY
     Route: 048
  41. FLONASE [Concomitant]
     Active Substance: FLUTICASONE PROPIONATE
     Indication: HYPERSENSITIVITY
     Dosage: 2 DF, DAILY(2 SPRAYS DAILY AT NIGHT/2 SPRAYS INTO BOTH NOSTRILS ONCE DAILY)
  42. COZAAR [Concomitant]
     Active Substance: LOSARTAN POTASSIUM
     Dosage: 100 MG, 1X/DAY
     Route: 048
  43. METFORMIN [Concomitant]
     Active Substance: METFORMIN HYDROCHLORIDE
     Indication: DIABETES MELLITUS
     Dosage: UNK, 2X/DAY
     Route: 048

REACTIONS (8)
  - Dry mouth [Not Recovered/Not Resolved]
  - Cough [Not Recovered/Not Resolved]
  - Retching [Unknown]
  - Fall [Unknown]
  - Feeling abnormal [Unknown]
  - Hypersensitivity [Unknown]
  - Productive cough [Unknown]
  - Dizziness [Recovered/Resolved]

NARRATIVE: CASE EVENT DATE: 2015
